FAERS Safety Report 10815240 (Version 3)
Quarter: 2015Q2

REPORT INFORMATION
  Report Type: Spontaneous
  Country: FR (occurrence: FR)
  Receive Date: 20150218
  Receipt Date: 20150605
  Transmission Date: 20150821
  Serious: Yes (Hospitalization, Other)
  Sender: FDA-Public Use
  Company Number: FR-PFIZER INC-2015056449

PATIENT
  Age: 45 Year
  Sex: Male
  Weight: 58 kg

DRUGS (8)
  1. VFEND [Suspect]
     Active Substance: VORICONAZOLE
     Indication: ASPERGILLOMA
     Dosage: 200 MG, 2X/DAY
     Route: 048
     Dates: start: 200511, end: 20150218
  2. INSULIN [Concomitant]
     Active Substance: INSULIN NOS
     Indication: DIABETES MELLITUS
     Dosage: UNK, 3X/DAY
  3. HYDROCORTISONE. [Concomitant]
     Active Substance: HYDROCORTISONE
  4. ZITHROMAX [Concomitant]
     Active Substance: AZITHROMYCIN DIHYDRATE
     Indication: OBSTRUCTIVE AIRWAYS DISORDER
     Dosage: 250 MG, 3X/WEEK
     Route: 048
  5. AMLOR [Concomitant]
     Active Substance: AMLODIPINE BESYLATE
     Indication: HYPERTENSION
     Dosage: 5 MG, 1X/DAY
     Route: 048
  6. SERETIDE [Concomitant]
     Active Substance: FLUTICASONE FUROATE\SALMETEROL XINAFOATE
  7. BRICANYL [Concomitant]
     Active Substance: TERBUTALINE SULFATE
  8. INEXIUM [Concomitant]
     Active Substance: ESOMEPRAZOLE
     Indication: PROPHYLAXIS
     Dosage: 20 MG, 1X/DAY
     Route: 048

REACTIONS (2)
  - Carcinoma in situ of eye [Recovered/Resolved]
  - Dysplasia [Recovered/Resolved]

NARRATIVE: CASE EVENT DATE: 20140716
